FAERS Safety Report 21841597 (Version 1)
Quarter: 2023Q1

REPORT INFORMATION
  Report Type: Spontaneous
  Country: US (occurrence: None)
  Receive Date: 20230109
  Receipt Date: 20230109
  Transmission Date: 20230418
  Serious: No
  Sender: FDA-Public Use
  Company Number: None

PATIENT
  Sex: Male

DRUGS (1)
  1. TALTZ [Suspect]
     Active Substance: IXEKIZUMAB
     Indication: Psoriasis
     Dosage: 80MG EVERY 4 WEEKS SUB
     Route: 058
     Dates: start: 202203

REACTIONS (4)
  - Product storage error [None]
  - Drug dose omission by device [None]
  - Device defective [None]
  - Device deployment issue [None]
